FAERS Safety Report 17991244 (Version 2)
Quarter: 2020Q4

REPORT INFORMATION
  Report Type: Report from Study
  Country: US (occurrence: US)
  Receive Date: 20200707
  Receipt Date: 20201118
  Transmission Date: 20210113
  Serious: Yes (Death)
  Sender: FDA-Public Use
  Company Number: US-PFIZER INC-2020257891

PATIENT

DRUGS (2)
  1. GEMCITABINE HYDROCHLORIDE. [Suspect]
     Active Substance: GEMCITABINE HYDROCHLORIDE
     Indication: TRANSITIONAL CELL CARCINOMA METASTATIC
     Dosage: 1000 MG/M2, CYCLIC
     Route: 042
  2. ERIBULIN MESILATE [Suspect]
     Active Substance: ERIBULIN
     Indication: TRANSITIONAL CELL CARCINOMA METASTATIC
     Dosage: 1.4 MG/M2, OVER 2 TO 5 MINUTES ONCE A WEEK FOR 2 WEEKS IN A ROW (ON DAYS 1 AND 8) OF A 21-DAY CYCLE
     Route: 040

REACTIONS (2)
  - Sepsis [Fatal]
  - Appendicitis perforated [Fatal]
